FAERS Safety Report 5917222-0 (Version None)
Quarter: 2008Q4

REPORT INFORMATION
  Report Type: 
  Country: None (occurrence: None)
  Receive Date: 20081009
  Receipt Date: 20080924
  Transmission Date: 20090506
  Serious: Yes (Disabling)
  Sender: FDA-Public Use
  Company Number: 2008S1017393

PATIENT
  Age: 80 Year
  Sex: Female

DRUGS (11)
  1. AZATHIOPRINE [Suspect]
     Indication: DIFFUSE VASCULITIS
     Dosage: 100 MG
     Dates: start: 20070215, end: 20070426
  2. CYCLOPHOSPHAMIDE [Suspect]
     Indication: DIFFUSE VASCULITIS
     Dosage: 50 MG; ORAL
     Route: 048
     Dates: start: 20061024, end: 20070215
  3. MYCOPHENOLATE MOFETIL [Suspect]
     Indication: DIFFUSE VASCULITIS
     Dosage: 250 MG; ORAL
     Route: 048
     Dates: start: 20070426
  4. ADCAL-D3 (LEKOVIT CA) [Concomitant]
  5. ALENDRONIC ACID (ALENDRONIC ACID) [Concomitant]
  6. BISOPROLOL FUMARATE [Concomitant]
  7. DIGOXIN [Concomitant]
  8. FUROSEMIDE [Concomitant]
  9. OMEPRAZOLE [Concomitant]
  10. PREDNISONE [Concomitant]
  11. WARFARIN SODIUM [Concomitant]

REACTIONS (1)
  - MYELODYSPLASTIC SYNDROME [None]
